FAERS Safety Report 8326841-6 (Version None)
Quarter: 2012Q2

REPORT INFORMATION
  Report Type: 
  Country: None (occurrence: None)
  Receive Date: 20120430
  Receipt Date: 20120416
  Transmission Date: 20120825
  Serious: Yes (Life-Threatening, Other)
  Sender: FDA-Public Use
  Company Number: 20120265

PATIENT
  Age: 36 Week
  Sex: Male
  Weight: 2.4 kg

DRUGS (8)
  1. LIDOCAINE 1% INJ [Suspect]
     Indication: VENTRICULAR ARRHYTHMIA
     Dosage: 1 MG/KG BOLUSES + INFUSION INTRAVENOUS BOLUS
     Route: 040
  2. AMIODARONE HCL [Suspect]
     Indication: TORSADE DE POINTES
     Dosage: 1-3 MG/KG INTRAVENOUS BOLUS
     Route: 040
  3. POTASSIUM CHLORIDE [Concomitant]
  4. PHENYTOIN SODIUM [Suspect]
     Indication: PRODUCT USED FOR UNKNOWN INDICATION
     Dosage: 8 MG/KG INTRAVENOUS
     Route: 042
  5. MAGNESIUM [Concomitant]
  6. ESMOLOL HCL [Suspect]
     Indication: VENTRICULAR ARRHYTHMIA
     Dosage: 30-500 UG/KG/MIN INTRAVENOUS DRIP
     Route: 041
  7. ALBUMIN (HUMAN) [Concomitant]
  8. CALCIUM [Concomitant]

REACTIONS (9)
  - MOVEMENT DISORDER [None]
  - NEUROLOGICAL SYMPTOM [None]
  - OVERDOSE [None]
  - PUPIL FIXED [None]
  - TOXICITY TO VARIOUS AGENTS [None]
  - OFF LABEL USE [None]
  - AREFLEXIA [None]
  - DRUG INTERACTION [None]
  - FEBRILE CONVULSION [None]
